FAERS Safety Report 4781036-8 (Version None)
Quarter: 2005Q3

REPORT INFORMATION
  Report Type: 
  Country: None (occurrence: None)
  Receive Date: 20050926
  Receipt Date: 20050926
  Transmission Date: 20060218
  Serious: Yes (Hospitalization)
  Sender: FDA-Public Use
  Company Number: None

PATIENT
  Age: 42 Year
  Sex: Male
  Weight: 78.3362 kg

DRUGS (8)
  1. BEVACIZUMAB [Suspect]
     Indication: METASTATIC GASTRIC CANCER
     Dosage: 15MG/KG IV DAY1
     Route: 042
     Dates: start: 20050922
  2. OXALIPLATIN [Suspect]
     Indication: METASTATIC GASTRIC CANCER
     Dosage: 75MG/M2  IV DAY1
     Route: 042
     Dates: start: 20050922
  3. DOCETAXEL [Suspect]
     Indication: METASTATIC GASTRIC CANCER
     Dosage: 70MG/M2 IV DAY 1
     Route: 042
     Dates: start: 20050922
  4. FENTANYL [Concomitant]
  5. OXYCODONE HCL [Concomitant]
  6. METOCLOPRAMIDE [Concomitant]
  7. COLACE [Concomitant]
  8. MILK OF MAGNESIA TAB [Concomitant]

REACTIONS (2)
  - MALAISE [None]
  - TROPONIN I INCREASED [None]
